FAERS Safety Report 5868944-1 (Version None)
Quarter: 2008Q3

REPORT INFORMATION
  Report Type: 
  Country: None (occurrence: None)
  Receive Date: 20080902
  Receipt Date: 20080902
  Transmission Date: 20090109
  Serious: Yes (Other)
  Sender: FDA-Public Use
  Company Number: None

PATIENT
  Age: 40 Year
  Sex: Female
  Weight: 74.8435 kg

DRUGS (1)
  1. MURINE EAR DROPS [Suspect]
     Indication: CERUMEN IMPACTION
     Dosage: 5 DROPS ONCE OTHER
     Route: 050
     Dates: start: 20080901, end: 20080901

REACTIONS (1)
  - EAR PAIN [None]
